FAERS Safety Report 8995105 (Version 1)
Quarter: 2012Q4

REPORT INFORMATION
  Report Type: Spontaneous
  Country: US (occurrence: None)
  Receive Date: 20121228
  Receipt Date: 20121228
  Transmission Date: 20130627
  Serious: Yes (Life-Threatening)
  Sender: FDA-Public Use
  Company Number: None

PATIENT
  Age: 64 Year
  Sex: Male
  Weight: 139.3 kg

DRUGS (1)
  1. PROPOFOL [Suspect]
     Indication: SEDATION
     Dosage: 200 MG ONCE IV
     Route: 042
     Dates: start: 20121217, end: 20121217

REACTIONS (5)
  - Cardiac arrest [None]
  - Pulseless electrical activity [None]
  - Myocardial depression [None]
  - Myocardial stunning [None]
  - Sinus tachycardia [None]
